FAERS Safety Report 12722709 (Version 2)
Quarter: 2016Q3

REPORT INFORMATION
  Report Type: Spontaneous
  Country: US (occurrence: US)
  Receive Date: 20160907
  Receipt Date: 20160909
  Transmission Date: 20161109
  Serious: Yes (Other)
  Sender: FDA-Public Use
  Company Number: US-ACTELION-A-NJ2016-141623

PATIENT
  Age: 59 Year
  Sex: Female

DRUGS (1)
  1. VELETRI [Suspect]
     Active Substance: EPOPROSTENOL
     Indication: PULMONARY HYPERTENSION
     Dosage: 34.08 NG/KG, PER MIN
     Route: 042
     Dates: start: 20141215

REACTIONS (5)
  - Memory impairment [Unknown]
  - Mental disorder [Unknown]
  - Drug administration error [Unknown]
  - Mass [Unknown]
  - Transient ischaemic attack [Unknown]
